FAERS Safety Report 19679380 (Version 2)
Quarter: 2021Q3

REPORT INFORMATION
  Report Type: Spontaneous
  Country: US (occurrence: US)
  Receive Date: 20210810
  Receipt Date: 20210811
  Transmission Date: 20211014
  Serious: No
  Sender: FDA-Public Use
  Company Number: US-JNJFOC-20210524629

PATIENT
  Age: 63 Year
  Sex: Male

DRUGS (3)
  1. OPSUMIT [Suspect]
     Active Substance: MACITENTAN
     Indication: PULMONARY ARTERIAL HYPERTENSION
     Route: 048
     Dates: start: 20200506
  2. UPTRAVI [Concomitant]
     Active Substance: SELEXIPAG
     Indication: PRODUCT USED FOR UNKNOWN INDICATION
     Dosage: PATIENT HAD 4 TABLETS TWICE DAY, WHICH WAS 800 MCG, THEN GOING TO 1000 MCG
     Route: 048
     Dates: start: 20210604
  3. JANSSEN COVID?19 VACCINE [Suspect]
     Active Substance: AD26.COV2.S
     Indication: IMMUNISATION
     Route: 065
     Dates: start: 2021, end: 2021

REACTIONS (3)
  - Dyspnoea [Unknown]
  - Therapeutic response decreased [Unknown]
  - Disturbance in social behaviour [Unknown]

NARRATIVE: CASE EVENT DATE: 202104
